FAERS Safety Report 6135995-1 (Version None)
Quarter: 2009Q1

REPORT INFORMATION
  Report Type: 
  Country: None (occurrence: None)
  Receive Date: 20090330
  Receipt Date: 20090317
  Transmission Date: 20090719
  Serious: Yes (Life-Threatening, Disabling)
  Sender: FDA-Public Use
  Company Number: GB-RANBAXY-2009RR-22860

PATIENT
  Age: 34 Year
  Sex: Male
  Weight: 81 kg

DRUGS (6)
  1. AMITRIPTYLINE [Suspect]
     Indication: DEPRESSION
     Dosage: 50 MG, UNK
  2. AMITRIPTYLINE [Suspect]
     Dosage: 150 MG, UNK
  3. AMITRIPTYLINE [Suspect]
     Dosage: UNK
     Route: 048
     Dates: start: 20090205, end: 20090213
  4. FLUOXETINE [Suspect]
     Indication: DEPRESSION
     Dosage: 20 MG, UNK
     Route: 048
  5. FLUOXETINE [Suspect]
     Dosage: 60-80 MG
  6. FLUOXETINE [Suspect]
     Dosage: UNK
     Route: 048
     Dates: start: 20081204

REACTIONS (1)
  - EPILEPSY [None]
